FAERS Safety Report 4778913-0 (Version None)
Quarter: 2005Q3

REPORT INFORMATION
  Report Type: 
  Country: None (occurrence: None)
  Receive Date: 20050922
  Receipt Date: 20050908
  Transmission Date: 20060218
  Serious: Yes (Death, Hospitalization)
  Sender: FDA-Public Use
  Company Number: P200500020

PATIENT
  Age: 89 Year
  Sex: Male
  Weight: 83.9 kg

DRUGS (6)
  1. PLENAXIS [Suspect]
     Indication: PROSTATE CANCER
     Dosage: 100 MG, SINGLE, INTRAMUSCULAR
     Route: 030
     Dates: start: 20050511, end: 20050511
  2. PLENAXIS [Suspect]
     Indication: PROSTATE CANCER
     Dosage: 100 MG, SINGLE, INTRAMUSCULAR
     Route: 030
     Dates: start: 20050722, end: 20050722
  3. ZOLADEX [Concomitant]
  4. PLAVIX [Concomitant]
  5. PERCOCET [Concomitant]
  6. COUMADIN [Concomitant]

REACTIONS (3)
  - CEREBROVASCULAR ACCIDENT [None]
  - HYDRONEPHROSIS [None]
  - NEPHROLITHIASIS [None]
